FAERS Safety Report 10258601 (Version 1)
Quarter: 2014Q2

REPORT INFORMATION
  Report Type: Spontaneous
  Country: GB (occurrence: None)
  Receive Date: 20140623
  Receipt Date: 20140623
  Transmission Date: 20141212
  Serious: Yes (Death, Other)
  Sender: FDA-Public Use
  Company Number: AUR-APL-2014-06517

PATIENT
  Age: 76 Year
  Sex: Female
  Weight: 51 kg

DRUGS (7)
  1. FLUOXETINE [Suspect]
     Indication: DEPRESSION
     Route: 048
     Dates: end: 20131114
  2. TRAMADOL [Suspect]
     Indication: PAIN
     Route: 048
     Dates: start: 20131109
  3. ASPIRIN (ACETYLSALICYLIC ACID) [Concomitant]
  4. CLOPIDOGREL (CLOPIDOGREL) [Concomitant]
  5. DALTEPARIN (DALTEPARIN) [Concomitant]
  6. PARACETAMOL (PARACETAMOL) [Concomitant]
  7. SIMVASTATIN (SIMVASTATIN) [Concomitant]

REACTIONS (3)
  - Cardiopulmonary failure [None]
  - Toxicity to various agents [None]
  - Sudden death [None]
